FAERS Safety Report 5939389-0 (Version None)
Quarter: 2008Q4

REPORT INFORMATION
  Report Type: 
  Country: None (occurrence: None)
  Receive Date: 20081103
  Receipt Date: 20081024
  Transmission Date: 20090506
  Serious: Yes (Other)
  Sender: FDA-Public Use
  Company Number: US-PFIZER INC-2008090329

PATIENT
  Sex: Male
  Weight: 105 kg

DRUGS (5)
  1. CELEBREX [Suspect]
     Indication: MYALGIA
     Dates: start: 20080101, end: 20081001
  2. CELEBREX [Suspect]
     Indication: ARTHRALGIA
  3. IBUPROFEN TABLETS [Suspect]
     Indication: MYALGIA
     Dates: start: 20080101, end: 20081001
  4. IBUPROFEN TABLETS [Suspect]
     Indication: ARTHRALGIA
  5. DRUG, UNSPECIFIED [Concomitant]

REACTIONS (1)
  - DYSKINESIA [None]
